FAERS Safety Report 10058568 (Version 2)
Quarter: 2014Q2

REPORT INFORMATION
  Report Type: Spontaneous
  Country: US (occurrence: US)
  Receive Date: 20140404
  Receipt Date: 20140506
  Transmission Date: 20141212
  Serious: Yes (Death, Other)
  Sender: FDA-Public Use
  Company Number: US-ASTELLAS-2014US003361

PATIENT
  Age: 56 Year
  Sex: Male

DRUGS (16)
  1. XTANDI [Suspect]
     Indication: PROSTATE CANCER METASTATIC
     Route: 048
     Dates: start: 20130307, end: 20131015
  2. ACETAMINOPHEN W/HYDROCODONE [Concomitant]
     Indication: BREAKTHROUGH PAIN
     Dosage: 400-5 MG, 1-2 TABS EVERY 4-6HRS PRN
     Route: 048
  3. CODEINE W/GUAIFENESIN              /00693301/ [Concomitant]
     Indication: COUGH
     Dosage: 10-300 MG/5 ML, EVERY 6 HOURS AS NEEDED
     Route: 048
  4. DEXAMETHASONE [Concomitant]
     Indication: NAUSEA
     Dosage: 4 MG, 1 TAB TWICE DAILY FOR 14 DAYS
     Route: 048
  5. FUROSEMIDE [Concomitant]
     Indication: PRODUCT USED FOR UNKNOWN INDICATION
     Route: 048
  6. HYDROMORPHONE [Concomitant]
     Indication: PAIN
     Dosage: 2 MG, 1-3 TABS EVERY 4 HRS AS NEEDED
     Route: 048
  7. LEVOFLOXACIN [Concomitant]
     Indication: PRODUCT USED FOR UNKNOWN INDICATION
     Route: 048
  8. ONDANSETRON [Concomitant]
     Indication: NAUSEA
     Dosage: 8 MG, TWICE DAILY, TAKE FOR 2 DAYS AFTER CHEMO
     Route: 048
  9. PREDNISONE [Concomitant]
     Indication: PRODUCT USED FOR UNKNOWN INDICATION
  10. PROCHLORPERAZINE [Concomitant]
     Indication: NAUSEA
     Dosage: 10 MG, EVERY 4 HRS AS NEEDED
     Route: 048
  11. TRAMADOL [Concomitant]
     Indication: PAIN
     Dosage: 50 MG, EVERY 12 HOURS AS NEEDED
     Route: 048
  12. CALCIUM 600+D                      /00944201/ [Concomitant]
     Indication: PRODUCT USED FOR UNKNOWN INDICATION
     Dosage: UNK UNK, THRICE DAILY
     Route: 048
  13. MULTIPLE VITAMINS [Concomitant]
     Indication: PRODUCT USED FOR UNKNOWN INDICATION
     Route: 048
  14. ZOLADEX                            /00732101/ [Concomitant]
     Indication: PRODUCT USED FOR UNKNOWN INDICATION
     Dosage: 10.8 MG IMPLANT, EVERY 3 MONTHS
     Route: 058
  15. CABAZITAXEL [Concomitant]
     Indication: PRODUCT USED FOR UNKNOWN INDICATION
     Dosage: 2 CYCLES RECEIVED, CYCLIC
     Route: 042
  16. LORAZEPAM [Concomitant]
     Indication: PRODUCT USED FOR UNKNOWN INDICATION
     Dosage: UNK, UNKNOWN FREQ.
     Route: 065

REACTIONS (1)
  - Malignant neoplasm progression [Fatal]
